FAERS Safety Report 6950611-4 (Version None)
Quarter: 2010Q3

REPORT INFORMATION
  Report Type: 
  Country: None (occurrence: None)
  Receive Date: 20100828
  Receipt Date: 20100324
  Transmission Date: 20110219
  Serious: No
  Sender: FDA-Public Use
  Company Number: US-ABBOTT-10P-163-0627593-00

PATIENT
  Sex: Male
  Weight: 77.18 kg

DRUGS (3)
  1. NIASPAN [Suspect]
     Indication: BLOOD CHOLESTEROL INCREASED
     Dosage: AT BEDTIME
     Dates: start: 20091001
  2. FISH OIL [Concomitant]
     Indication: PRODUCT USED FOR UNKNOWN INDICATION
  3. VIT D [Concomitant]
     Indication: PRODUCT USED FOR UNKNOWN INDICATION

REACTIONS (4)
  - CIRCUMORAL OEDEMA [None]
  - FEELING HOT [None]
  - FLUSHING [None]
  - HYPOAESTHESIA ORAL [None]
